FAERS Safety Report 17187648 (Version 1)
Quarter: 2019Q4

REPORT INFORMATION
  Report Type: Report from Study
  Country: None (occurrence: SI)
  Receive Date: 20191220
  Receipt Date: 20191220
  Transmission Date: 20200122
  Serious: Yes (Death, Hospitalization)
  Sender: FDA-Public Use
  Company Number: SI-ABBVIE-19K-261-3205683-00

PATIENT
  Age: 84 Year
  Sex: Male

DRUGS (1)
  1. DUODOPA [Suspect]
     Active Substance: CARBIDOPA\LEVODOPA
     Indication: PARKINSON^S DISEASE
     Route: 050
     Dates: start: 201101, end: 201912

REACTIONS (4)
  - Condition aggravated [Fatal]
  - Weight decreased [Fatal]
  - Decreased appetite [Fatal]
  - Vomiting [Fatal]

NARRATIVE: CASE EVENT DATE: 201912
